FAERS Safety Report 25682217 (Version 1)
Quarter: 2025Q3

REPORT INFORMATION
  Report Type: Spontaneous
  Country: PR (occurrence: PR)
  Receive Date: 20250814
  Receipt Date: 20250814
  Transmission Date: 20251020
  Serious: Yes (Life-Threatening, Hospitalization, Other)
  Sender: EXELA PHARMA SCIENCES
  Company Number: PR-EXELAPHARMA-2025EXLA00152

PATIENT
  Age: 32 Year
  Sex: Male

DRUGS (1)
  1. FENTANYL CITRATE [Suspect]
     Active Substance: FENTANYL CITRATE
     Indication: Substance abuse
     Route: 042

REACTIONS (15)
  - Pain [Unknown]
  - Pallor [Unknown]
  - Paraesthesia [Unknown]
  - Monoplegia [Unknown]
  - Necrotising fasciitis [Unknown]
  - Peripheral ischaemia [Unknown]
  - Rhabdomyolysis [Unknown]
  - Acute kidney injury [Unknown]
  - Pulseless electrical activity [Unknown]
  - Ventricular fibrillation [Unknown]
  - Acute hepatic failure [Unknown]
  - Disseminated intravascular coagulation [Unknown]
  - Unresponsive to stimuli [Unknown]
  - Hypotension [Not Recovered/Not Resolved]
  - Substance abuse [Unknown]
